FAERS Safety Report 6444108-8 (Version None)
Quarter: 2009Q4

REPORT INFORMATION
  Report Type: 
  Country: None (occurrence: None)
  Receive Date: 20091118
  Receipt Date: 20091116
  Transmission Date: 20100525
  Serious: Yes (Hospitalization)
  Sender: FDA-Public Use
  Company Number: FR-WYE-G04885009

PATIENT
  Sex: Female

DRUGS (2)
  1. ADVIL [Suspect]
     Indication: TONSILLITIS
     Dosage: UNKNOWN
     Route: 048
     Dates: start: 20090729, end: 20090730
  2. DOLIPRANE [Concomitant]
     Indication: TONSILLITIS
     Dosage: 1 TO 3 TABLETS TOTAL DAILY AS REQUIRED
     Route: 048
     Dates: start: 20090729

REACTIONS (1)
  - TONSILLAR ULCER [None]
